FAERS Safety Report 5961637-1 (Version None)
Quarter: 2008Q4

REPORT INFORMATION
  Report Type: 
  Country: None (occurrence: None)
  Receive Date: 20081121
  Receipt Date: 20081113
  Transmission Date: 20090506
  Serious: Yes (Other)
  Sender: FDA-Public Use
  Company Number: CH-AVENTIS-200820762GDDC

PATIENT
  Age: 88 Year
  Sex: Female

DRUGS (11)
  1. FLAGYL [Suspect]
     Route: 048
     Dates: start: 20081024
  2. SINTROM [Suspect]
     Indication: PULMONARY EMBOLISM
     Route: 048
     Dates: start: 20081024, end: 20081024
  3. SINTROM [Suspect]
     Route: 048
     Dates: start: 20081025, end: 20081026
  4. ROCEPHIN [Concomitant]
     Route: 042
  5. LASIX [Concomitant]
     Route: 042
  6. CLEXANE [Concomitant]
     Route: 058
  7. SORBITOL [Concomitant]
     Route: 048
  8. MORPHINE SULFATE [Concomitant]
  9. LAXOBERON [Concomitant]
     Route: 048
  10. BULBOID [Concomitant]
     Route: 054
  11. POTASSIUM CHLORIDE [Concomitant]

REACTIONS (2)
  - DRUG INTERACTION [None]
  - INTERNATIONAL NORMALISED RATIO INCREASED [None]
